FAERS Safety Report 20626408 (Version 1)
Quarter: 2022Q1

REPORT INFORMATION
  Report Type: Report from Study
  Country: US (occurrence: None)
  Receive Date: 20220323
  Receipt Date: 20220323
  Transmission Date: 20220423
  Serious: Yes (Hospitalization, Other)
  Sender: FDA-Public Use
  Company Number: 2022A115571

PATIENT
  Sex: Male

DRUGS (2)
  1. CALQUENCE [Suspect]
     Active Substance: ACALABRUTINIB
     Route: 048
  2. CALQUENCE [Suspect]
     Active Substance: ACALABRUTINIB
     Route: 048

REACTIONS (7)
  - Myocardial infarction [Unknown]
  - Pain [Unknown]
  - Dyspnoea [Unknown]
  - Gait inability [Unknown]
  - Middle insomnia [Unknown]
  - Blood glucose fluctuation [Not Recovered/Not Resolved]
  - Hyperhidrosis [Unknown]
